FAERS Safety Report 7057350-2 (Version None)
Quarter: 2010Q4

REPORT INFORMATION
  Report Type: 
  Country: None (occurrence: None)
  Receive Date: 20101022
  Receipt Date: 20101018
  Transmission Date: 20110411
  Serious: Yes (Other)
  Sender: FDA-Public Use
  Company Number: US-WYE-H16182310

PATIENT
  Sex: Female
  Weight: 62.65 kg

DRUGS (12)
  1. RAPAMUNE [Suspect]
     Indication: TUBEROUS SCLEROSIS
     Route: 048
     Dates: start: 20070301, end: 20080501
  2. RAPAMUNE [Suspect]
     Indication: ANGIOMYOLIPOMA
     Dates: start: 20080501, end: 20090101
  3. RAPAMUNE [Suspect]
     Indication: ASTROCYTOMA
     Dosage: DOSE NOT PROVIDED
     Dates: start: 20090101, end: 20100301
  4. RAPAMUNE [Suspect]
     Dates: start: 20100701
  5. CARBATROL [Concomitant]
  6. FLUOXETINE [Concomitant]
  7. IBUPROFEN [Concomitant]
     Dosage: DOSE NOT PROVIDED, TAKEN AS NEEDED
  8. ZOLOFT [Concomitant]
  9. LORATADINE [Concomitant]
  10. ACETAMINOPHEN [Concomitant]
     Dosage: DOSE NOT PROVIDED, TAKEN AS NEEDED
  11. KEPPRA [Concomitant]
  12. FOLIC ACID [Concomitant]

REACTIONS (7)
  - CYCLIC VOMITING SYNDROME [None]
  - DIASTOLIC HYPERTENSION [None]
  - DISEASE PROGRESSION [None]
  - DRUG DOSE OMISSION [None]
  - IMPAIRED GASTRIC EMPTYING [None]
  - THERAPEUTIC RESPONSE UNEXPECTED [None]
  - TUBEROUS SCLEROSIS [None]
